FAERS Safety Report 17044782 (Version 3)
Quarter: 2019Q4

REPORT INFORMATION
  Report Type: Spontaneous
  Country: JP (occurrence: JP)
  Receive Date: 20191118
  Receipt Date: 20191204
  Transmission Date: 20200122
  Serious: Yes (Hospitalization, Other)
  Sender: FDA-Public Use
  Company Number: JP-JNJFOC-20191114496

PATIENT
  Age: 75 Year
  Sex: Male

DRUGS (6)
  1. RISPERDAL [Suspect]
     Active Substance: RISPERIDONE
     Indication: FRONTOTEMPORAL DEMENTIA
     Dosage: OFF-LABEL USE 11 RISPERIDONE:1MG
     Route: 048
  2. ARIPIPRAZOLE. [Concomitant]
     Active Substance: ARIPIPRAZOLE
     Indication: CEREBRAL ATROPHY
     Route: 048
     Dates: start: 201809
  3. RISPERDAL [Suspect]
     Active Substance: RISPERIDONE
     Indication: RESTLESSNESS
     Dosage: OFF-LABEL USE 11 RISPERIDONE:1MG
     Route: 048
     Dates: start: 201809
  4. RISPERDAL [Suspect]
     Active Substance: RISPERIDONE
     Dosage: OFF-LABEL USE 11 RISPERIDONE:1MG
     Route: 048
     Dates: start: 201809, end: 201809
  5. RISPERDAL [Suspect]
     Active Substance: RISPERIDONE
     Route: 048
     Dates: start: 2018, end: 20181207
  6. ASENAPINE MALEATE [Concomitant]
     Active Substance: ASENAPINE MALEATE

REACTIONS (7)
  - Cerebral atrophy [Unknown]
  - Inappropriate schedule of product administration [Unknown]
  - Salivary hypersecretion [Recovered/Resolved]
  - Restlessness [Recovered/Resolved]
  - Off label use [Unknown]
  - Product use in unapproved indication [Unknown]
  - Poriomania [Not Recovered/Not Resolved]

NARRATIVE: CASE EVENT DATE: 2018
